FAERS Safety Report 5163774-0 (Version None)
Quarter: 2006Q4

REPORT INFORMATION
  Report Type: 
  Country: None (occurrence: None)
  Receive Date: 20061124
  Receipt Date: 20061114
  Transmission Date: 20070319
  Serious: Yes (Congenital Anomaly, Other)
  Sender: FDA-Public Use
  Company Number: 2006142321

PATIENT

DRUGS (7)
  1. DEPO-PROVERA [Suspect]
     Indication: OVARIAN CYST
     Dosage: 150 MG (150 MG, 1ST INJECTION
     Dates: start: 20051027, end: 20051027
  2. AMITRIPTYLINE (AMITRIPITYLINE) [Concomitant]
  3. FROVA (FROVATRIPTAN) [Concomitant]
  4. MULTIVITAMIN [Concomitant]
  5. CALCIUM (CALCIUM) [Concomitant]
  6. GLUCOSAMINE (GLUCOSAMINE) [Concomitant]
  7. VITAMIN E [Concomitant]

REACTIONS (3)
  - CAESAREAN SECTION [None]
  - DRUG EXPOSURE DURING PREGNANCY [None]
  - PRADER-WILLI SYNDROME [None]
